FAERS Safety Report 21825898 (Version 1)
Quarter: 2023Q1

REPORT INFORMATION
  Report Type: Spontaneous
  Country: US (occurrence: US)
  Receive Date: 20230106
  Receipt Date: 20230106
  Transmission Date: 20230417
  Serious: Yes (Other)
  Sender: FDA-Public Use
  Company Number: US-BIOVITRUM-2022US14850

PATIENT
  Sex: Female

DRUGS (1)
  1. DOPTELET [Suspect]
     Active Substance: AVATROMBOPAG MALEATE
     Indication: Immune thrombocytopenia
     Dosage: TWICE ON MONDAYS, WEDNESDAYS, AND FRIDAYS, AND SOMETIMES TWICE DAILY ON OTHER DAYS
     Dates: start: 20220324

REACTIONS (5)
  - Deep vein thrombosis [Unknown]
  - Inflammation [Unknown]
  - Platelet count decreased [Unknown]
  - Off label use [Unknown]
  - Drug ineffective [Unknown]
